FAERS Safety Report 11335247 (Version 1)
Quarter: 2015Q3

REPORT INFORMATION
  Report Type: Spontaneous
  Country: GB (occurrence: None)
  Receive Date: 20150731
  Receipt Date: 20150731
  Transmission Date: 20151125
  Serious: Yes (Other)
  Sender: FDA-Public Use
  Company Number: None

PATIENT
  Age: 64 Year
  Sex: Female
  Weight: 65 kg

DRUGS (2)
  1. RAMIPRIL. [Concomitant]
     Active Substance: RAMIPRIL
  2. LETROZOLE 2.5MGS [Suspect]
     Active Substance: LETROZOLE
     Indication: MASTECTOMY
     Route: 048

REACTIONS (1)
  - Hypertension [None]

NARRATIVE: CASE EVENT DATE: 20141103
